FAERS Safety Report 24063956 (Version 2)
Quarter: 2024Q3

REPORT INFORMATION
  Report Type: Spontaneous
  Country: US (occurrence: US)
  Receive Date: 20240709
  Receipt Date: 20240730
  Transmission Date: 20241017
  Serious: No
  Sender: APOTEX
  Company Number: US-APOTEX-2024AP007691

PATIENT
  Sex: Female

DRUGS (1)
  1. TRAVOPROST [Suspect]
     Active Substance: TRAVOPROST
     Indication: Product used for unknown indication
     Dosage: UNK, Q.O.D.
     Route: 065

REACTIONS (6)
  - Product dose omission issue [Unknown]
  - Device difficult to use [Unknown]
  - Device material issue [Unknown]
  - Off label use [Unknown]
  - No adverse event [Unknown]
  - Product substitution issue [Unknown]
